FAERS Safety Report 6936439-X (Version None)
Quarter: 2010Q3

REPORT INFORMATION
  Report Type: 
  Country: None (occurrence: None)
  Receive Date: 20100818
  Receipt Date: 20100802
  Transmission Date: 20110219
  Serious: Yes (Death, Life-Threatening, Hospitalization, Other)
  Sender: FDA-Public Use
  Company Number: 2010003023

PATIENT
  Age: 71 Year
  Sex: Male

DRUGS (6)
  1. ERLOTINIB HYDROCHLORIDE [Suspect]
     Indication: ADENOCARCINOMA PANCREAS
     Dosage: 100 MG, QD, ORAL
     Route: 048
     Dates: start: 20100511, end: 20100713
  2. GEMCITABINE HYDROCHLORIDE [Suspect]
     Indication: ADENOCARCINOMA PANCREAS
     Dosage: 1000 MG/M2, D1, 8, 15), INTRAVENOUS; MG/M2, INTRAVENOUS; MG/M2, INTRAVENOUS
     Route: 042
     Dates: start: 20080901
  3. GEMCITABINE HYDROCHLORIDE [Suspect]
     Indication: ADENOCARCINOMA PANCREAS
     Dosage: 1000 MG/M2, D1, 8, 15), INTRAVENOUS; MG/M2, INTRAVENOUS; MG/M2, INTRAVENOUS
     Route: 042
     Dates: start: 20090201
  4. GEMCITABINE HYDROCHLORIDE [Suspect]
     Indication: ADENOCARCINOMA PANCREAS
     Dosage: 1000 MG/M2, D1, 8, 15), INTRAVENOUS; MG/M2, INTRAVENOUS; MG/M2, INTRAVENOUS
     Route: 042
     Dates: start: 20100511
  5. PANITUMUMAB [Suspect]
     Indication: ADENOCARCINOMA PANCREAS
     Dosage: 4 MG/KG, D1, 15, INTRAVENOUS, 1000 MG/M2, D1, 8, 15, INTRAVENOUS
     Route: 042
     Dates: start: 20100511
  6. PANITUMUMAB [Suspect]
     Indication: ADENOCARCINOMA PANCREAS
     Dosage: 4 MG/KG, D1, 15, INTRAVENOUS, 1000 MG/M2, D1, 8, 15, INTRAVENOUS
     Route: 042
     Dates: start: 20100511

REACTIONS (11)
  - BACTERIAL INFECTION [None]
  - CARDIAC ARREST [None]
  - CLOSTRIDIUM DIFFICILE COLITIS [None]
  - DEHYDRATION [None]
  - HYPONATRAEMIA [None]
  - HYPOPHOSPHATAEMIA [None]
  - HYPOTENSION [None]
  - LACTIC ACIDOSIS [None]
  - RENAL FAILURE [None]
  - RESPIRATORY FAILURE [None]
  - VENTRICULAR FIBRILLATION [None]
